FAERS Safety Report 8579853-1 (Version None)
Quarter: 2012Q3

REPORT INFORMATION
  Report Type: 
  Country: None (occurrence: None)
  Receive Date: 20120808
  Receipt Date: 20120731
  Transmission Date: 20120928
  Serious: No
  Sender: FDA-Public Use
  Company Number: US-ASTRAZENECA-2012SE54189

PATIENT
  Age: 73 Year
  Sex: Male
  Weight: 62.1 kg

DRUGS (2)
  1. CASODEX [Suspect]
     Indication: PROSTATE CANCER
     Route: 048
  2. LUPRON [Concomitant]

REACTIONS (2)
  - FAECES DISCOLOURED [None]
  - CHROMATURIA [None]
